FAERS Safety Report 15468324 (Version 3)
Quarter: 2018Q4

REPORT INFORMATION
  Report Type: Report from Study
  Country: CA (occurrence: CA)
  Receive Date: 20181005
  Receipt Date: 20181116
  Transmission Date: 20190204
  Serious: Yes (Other)
  Sender: FDA-Public Use
  Company Number: PHHY2017CA071814

PATIENT
  Age: 57 Year
  Sex: Female

DRUGS (1)
  1. GILENYA [Suspect]
     Active Substance: FINGOLIMOD HYDROCHLORIDE
     Indication: PRODUCT USED FOR UNKNOWN INDICATION
     Dosage: UNK
     Route: 048
     Dates: end: 20160530

REACTIONS (13)
  - Nephrolithiasis [Not Recovered/Not Resolved]
  - Weight increased [Unknown]
  - Endocrine disorder [Unknown]
  - Swelling [Unknown]
  - Dry eye [Unknown]
  - Muscle strain [Unknown]
  - Fall [Unknown]
  - Oral herpes [Unknown]
  - Eye pain [Unknown]
  - Ovarian cyst [Unknown]
  - Abdominal mass [Unknown]
  - Pain [Recovered/Resolved]
  - Pain [Unknown]

NARRATIVE: CASE EVENT DATE: 201809
